FAERS Safety Report 6251295-3 (Version None)
Quarter: 2009Q2

REPORT INFORMATION
  Report Type: 
  Country: None (occurrence: None)
  Receive Date: 20090626
  Receipt Date: 20090614
  Transmission Date: 20091009
  Serious: Yes (Hospitalization)
  Sender: FDA-Public Use
  Company Number: CHNY2009BR02478

PATIENT
  Age: 36 Year
  Sex: Female

DRUGS (2)
  1. TRIMEDAL  (VITAMIN C, TROXERUTIN, ACETAMINOPHEN (PARACETAMOL), PHENYLE [Suspect]
     Dosage: 5 TABLETS, ORAL
     Route: 048
     Dates: start: 20090614, end: 20090614
  2. PROPRANOLOL [Suspect]
     Dosage: 20 TABLETS OF 40 MG, ORAL
     Route: 048
     Dates: start: 20090614, end: 20090614

REACTIONS (2)
  - INCORRECT DOSE ADMINISTERED [None]
  - SUICIDE ATTEMPT [None]
